FAERS Safety Report 22237155 (Version 1)
Quarter: 2023Q2

REPORT INFORMATION
  Report Type: Spontaneous
  Country: US (occurrence: None)
  Receive Date: 20230421
  Receipt Date: 20230421
  Transmission Date: 20230721
  Serious: No
  Sender: FDA-Public Use
  Company Number: US-ROCHE-3127586

PATIENT
  Sex: Female

DRUGS (5)
  1. ESBRIET [Suspect]
     Active Substance: PIRFENIDONE
     Indication: Idiopathic pulmonary fibrosis
     Dosage: 1 CAPSULE BY MOUTH 3 TIMES DAILY FOR 1 WEEK, THEN 2 CAPSULE 3 TIMES DAILY FOR 1 WEEK, THEN 3 CAPSULE
     Route: 048
     Dates: start: 20220518
  2. ESBRIET [Suspect]
     Active Substance: PIRFENIDONE
     Dosage: 1 CAPSULE BY MOUTH 3 TIMES DAILY FOR 1 WEEK, THEN 2 CAPSULE 3 TIMES DAILY FOR 1 WEEK, THEN 3 CAPSULE
     Route: 048
  3. ESBRIET [Suspect]
     Active Substance: PIRFENIDONE
     Dosage: 1 CAPSULE BY MOUTH 3 TIMES DAILY FOR 1 WEEK, THEN 2 CAPSULE 3 TIMES DAILY FOR 1 WEEK, THEN 3 CAPSULE
     Route: 048
  4. BREO ELLIPTA [Concomitant]
     Active Substance: FLUTICASONE FUROATE\VILANTEROL TRIFENATATE
  5. NP THYROID [Concomitant]
     Active Substance: LEVOTHYROXINE\LIOTHYRONINE

REACTIONS (2)
  - Nausea [Unknown]
  - Gastrooesophageal reflux disease [Unknown]
